FAERS Safety Report 9059546 (Version 1)
Quarter: 2013Q1

REPORT INFORMATION
  Report Type: Spontaneous
  Country: US (occurrence: None)
  Receive Date: 20130205
  Receipt Date: 20130205
  Transmission Date: 20140127
  Serious: No
  Sender: FDA-Public Use
  Company Number: None

PATIENT
  Sex: Female
  Weight: 111.4 kg

DRUGS (2)
  1. GEMCITABINE HYDROCHLORIDE [Suspect]
  2. TARCEVA [Suspect]
     Dosage: 100MG DAILY ON DAYS 1-43, FOLLOWED BY EXPLORATORY, AND POST OPERATIVE IV GEMCITABINE (1,000

REACTIONS (2)
  - Cellulitis [None]
  - Refusal of treatment by patient [None]
